FAERS Safety Report 8434443-6 (Version None)
Quarter: 2012Q2

REPORT INFORMATION
  Report Type: 
  Country: None (occurrence: None)
  Receive Date: 20120614
  Receipt Date: 20120608
  Transmission Date: 20120825
  Serious: Yes (Hospitalization)
  Sender: FDA-Public Use
  Company Number: US-AMGEN-USASP2012035973

PATIENT
  Age: 54 Year
  Sex: Female

DRUGS (1)
  1. ENBREL [Suspect]
     Indication: RHEUMATOID ARTHRITIS
     Dosage: 50 MG, QWK
     Dates: start: 20000101, end: 20111201

REACTIONS (11)
  - SKIN ATROPHY [None]
  - INJECTION SITE DISCOMFORT [None]
  - SHOULDER ARTHROPLASTY [None]
  - JOINT ARTHROPLASTY [None]
  - HIP ARTHROPLASTY [None]
  - HIP FRACTURE [None]
  - WOUND [None]
  - OSTEOPOROSIS [None]
  - COLITIS [None]
  - TOE OPERATION [None]
  - INTRAOCULAR PRESSURE INCREASED [None]
